FAERS Safety Report 6042603-7 (Version None)
Quarter: 2009Q1

REPORT INFORMATION
  Report Type: 
  Country: None (occurrence: None)
  Receive Date: 20090119
  Receipt Date: 20090107
  Transmission Date: 20090719
  Serious: Yes (Death, Hospitalization, Other)
  Sender: FDA-Public Use
  Company Number: HU-PFIZER INC-2008154174

PATIENT
  Sex: Male
  Weight: 42 kg

DRUGS (13)
  1. *ERLOTINIB [Suspect]
     Indication: NON-SMALL CELL LUNG CANCER
     Dosage: 150 MG, 1X/DAY
     Route: 048
     Dates: start: 20081111, end: 20081128
  2. BLINDED *PLACEBO [Suspect]
     Indication: NON-SMALL CELL LUNG CANCER
     Dosage: 37.5 MG, 1X/DAY
     Route: 048
     Dates: start: 20081111, end: 20081228
  3. BLINDED SUNITINIB MALATE [Suspect]
     Indication: NON-SMALL CELL LUNG CANCER
     Dosage: 37.5 MG, 1X/DAY
     Route: 048
     Dates: start: 20081111, end: 20081228
  4. CLINDAMYCIN HYDROCHLORIDE [Concomitant]
     Dosage: UNK
     Route: 042
     Dates: start: 20081125
  5. ATENOLOL AND CHLORTHALIDONE [Concomitant]
     Dosage: UNK
     Route: 048
     Dates: start: 20000101
  6. PENTOXIFYLLINE [Concomitant]
     Dosage: UNK
     Route: 048
     Dates: start: 20020101
  7. ALLOPURINOL [Concomitant]
     Dosage: UNK
     Route: 048
     Dates: start: 20000101
  8. TAMSULOSIN HCL [Concomitant]
     Dosage: UNK
     Route: 048
     Dates: start: 20040101
  9. ACETYLSALICYLIC ACID [Concomitant]
     Dosage: UNK
     Route: 048
     Dates: start: 20070101
  10. ACEMETACIN [Concomitant]
     Dosage: UNK
     Route: 048
     Dates: start: 20080101
  11. MEGESTROL ACETATE [Concomitant]
     Dosage: UNK
     Route: 048
     Dates: start: 20081125
  12. MOMETASONE FUROATE [Concomitant]
     Dosage: UNK
     Route: 062
     Dates: start: 20081125
  13. GENERAL NUTRIENTS/VITAMINS NOS [Concomitant]
     Dosage: UNK
     Route: 048
     Dates: start: 20080901

REACTIONS (10)
  - ANAEMIA [None]
  - BLOOD CREATININE INCREASED [None]
  - BLOOD UREA INCREASED [None]
  - DISEASE PROGRESSION [None]
  - FATIGUE [None]
  - GENERAL PHYSICAL HEALTH DETERIORATION [None]
  - HEPATIC FAILURE [None]
  - HYPOVOLAEMIA [None]
  - METASTASES TO LIVER [None]
  - THROMBOCYTOPENIA [None]
